FAERS Safety Report 13175931 (Version 2)
Quarter: 2017Q1

REPORT INFORMATION
  Report Type: Spontaneous
  Country: JP (occurrence: JP)
  Receive Date: 20170201
  Receipt Date: 20170314
  Transmission Date: 20170428
  Serious: Yes (Hospitalization)
  Sender: FDA-Public Use
  Company Number: JP-009507513-1701JPN002047J

PATIENT
  Age: 81 Year
  Sex: Male
  Weight: 57 kg

DRUGS (8)
  1. AMLODIPINE [Concomitant]
     Active Substance: AMLODIPINE BESYLATE
     Dosage: UNK MG, UNK
     Route: 048
     Dates: start: 20160419
  2. NEXIUM [Concomitant]
     Active Substance: ESOMEPRAZOLE MAGNESIUM
     Dosage: UNK MG, UNK
     Route: 048
     Dates: start: 20160427
  3. HERBAL NOS [Concomitant]
     Active Substance: HERBALS
     Dosage: UNK
     Route: 048
     Dates: start: 20160524
  4. CUBICIN [Suspect]
     Active Substance: DAPTOMYCIN
     Indication: VASCULAR STENT INFECTION
     Dosage: 350 MG, QD
     Route: 042
     Dates: start: 20161214, end: 20161218
  5. BISOPROLOL FUMARATE. [Concomitant]
     Active Substance: BISOPROLOL FUMARATE
     Dosage: UNK MG, UNK
     Route: 048
     Dates: start: 20160517
  6. DAIPHEN [Concomitant]
     Active Substance: SULFAMETHOXAZOLE\TRIMETHOPRIM
     Dosage: UNK
     Route: 048
     Dates: start: 20160630, end: 20161214
  7. SULBACILLIN [Suspect]
     Active Substance: AMPICILLIN SODIUM\SULBACTAM SODIUM
     Indication: VASCULAR STENT INFECTION
     Dosage: 3 G, BID
     Route: 042
     Dates: start: 20161214, end: 20161219
  8. LEVOFLOXACIN. [Concomitant]
     Active Substance: LEVOFLOXACIN
     Dosage: UNK MG, UNK
     Route: 048
     Dates: start: 20160614, end: 20161214

REACTIONS (1)
  - Liver disorder [Recovering/Resolving]

NARRATIVE: CASE EVENT DATE: 20161216
